FAERS Safety Report 8792387 (Version 1)
Quarter: 2012Q4

REPORT INFORMATION
  Report Type: 
  Country: US (occurrence: US)
  Receive Date: 20120918
  Receipt Date: 20120918
  Transmission Date: 20130627
  Serious: No
  Sender: FDA-Public Use
  Company Number: US-PFIZER INC-2012226005

PATIENT
  Age: 61 Year
  Sex: Male

DRUGS (2)
  1. TYGACIL [Suspect]
     Indication: ULCER
     Dosage: UNK
     Dates: start: 201208
  2. LANTUS [Concomitant]
     Indication: DIABETES MELLITUS
     Dosage: 15 IU, 2x/day

REACTIONS (2)
  - Nausea [Not Recovered/Not Resolved]
  - Vomiting [Not Recovered/Not Resolved]
